FAERS Safety Report 16340241 (Version 1)
Quarter: 2019Q2

REPORT INFORMATION
  Report Type: Spontaneous
  Country: US (occurrence: US)
  Receive Date: 20190522
  Receipt Date: 20190522
  Transmission Date: 20190711
  Serious: No
  Sender: FDA-Public Use
  Company Number: US-ASTRAZENECA-2019SE61542

PATIENT
  Sex: Female

DRUGS (1)
  1. SYMBICORT [Suspect]
     Active Substance: BUDESONIDE\FORMOTEROL FUMARATE DIHYDRATE
     Dosage: UNKNOWN UNKNOWN
     Route: 055

REACTIONS (7)
  - Glossodynia [Unknown]
  - Oral pigmentation [Unknown]
  - Tongue disorder [Recovered/Resolved]
  - Dry mouth [Unknown]
  - Paraesthesia oral [Unknown]
  - Oral discomfort [Unknown]
  - Tongue discomfort [Unknown]
